FAERS Safety Report 13107189 (Version 1)
Quarter: 2017Q1

REPORT INFORMATION
  Report Type: Spontaneous
  Country: RU (occurrence: RU)
  Receive Date: 20170112
  Receipt Date: 20170112
  Transmission Date: 20170428
  Serious: Yes (Other)
  Sender: FDA-Public Use
  Company Number: RU-ROCHE-1877017

PATIENT
  Age: 31 Year
  Sex: Male

DRUGS (4)
  1. IRINOTECAN [Suspect]
     Active Substance: IRINOTECAN
     Indication: CHOLANGIOCARCINOMA
     Route: 065
  2. IRINOTECAN [Suspect]
     Active Substance: IRINOTECAN
     Route: 065
  3. VEMURAFENIB [Suspect]
     Active Substance: VEMURAFENIB
     Indication: CHOLANGIOCARCINOMA
     Route: 065
  4. PANITUMUMAB [Suspect]
     Active Substance: PANITUMUMAB
     Indication: CHOLANGIOCARCINOMA
     Route: 065

REACTIONS (7)
  - Melanocytic naevus [Recovered/Resolved]
  - Alopecia [Unknown]
  - Paronychia [Unknown]
  - Skin toxicity [Unknown]
  - Nausea [Unknown]
  - Diarrhoea [Unknown]
  - Hypertrichosis [Unknown]
